APPROVED DRUG PRODUCT: CEPHALOTHIN
Active Ingredient: CEPHALOTHIN SODIUM
Strength: EQ 4GM BASE/VIAL
Dosage Form/Route: INJECTABLE;INJECTION
Application: A062426 | Product #004
Applicant: INTERNATIONAL MEDICATION SYSTEMS LTD
Approved: May 3, 1985 | RLD: No | RS: No | Type: DISCN